FAERS Safety Report 5902304-X (Version None)
Quarter: 2008Q3

REPORT INFORMATION
  Report Type: 
  Country: None (occurrence: None)
  Receive Date: 20080929
  Receipt Date: 20080923
  Transmission Date: 20090109
  Serious: No
  Sender: FDA-Public Use
  Company Number: US-B.I. PHARMACEUTICALS,INC./RIDGEFIELD-2008-BP-12719BP

PATIENT
  Sex: Female
  Weight: 62 kg

DRUGS (7)
  1. SPIRIVA [Suspect]
     Indication: CHRONIC OBSTRUCTIVE PULMONARY DISEASE
     Dosage: 18MCG
     Route: 055
     Dates: start: 20071101
  2. SPIRIVA [Suspect]
     Indication: ASTHMA
  3. LEVOTHYROXINE SODIUM [Concomitant]
     Indication: HYPOTHYROIDISM
     Dosage: 100MCG
     Dates: start: 19700101
  4. PROPRANOLOL [Concomitant]
     Indication: ARRHYTHMIA
     Dosage: 20MG
     Dates: start: 19880101
  5. PROPRANOLOL [Concomitant]
     Indication: MIGRAINE
  6. ZOCOR [Concomitant]
     Indication: HYPERCHOLESTEROLAEMIA
     Dosage: 10MG
     Dates: start: 20080101
  7. PREVACID [Concomitant]
     Indication: GASTROOESOPHAGEAL REFLUX DISEASE
     Dosage: 30MG
     Dates: start: 20080101

REACTIONS (1)
  - VISION BLURRED [None]
